FAERS Safety Report 12430097 (Version 1)
Quarter: 2016Q2

REPORT INFORMATION
  Report Type: Report from Study
  Country: US (occurrence: US)
  Receive Date: 20160602
  Receipt Date: 20160602
  Transmission Date: 20160815
  Serious: Yes (Hospitalization, Other)
  Sender: FDA-Public Use
  Company Number: US-ABBVIE-16P-163-1638994-00

PATIENT
  Age: 55 Year
  Sex: Female

DRUGS (2)
  1. MULTIVITAMIN [Concomitant]
     Active Substance: VITAMINS
     Indication: VITAMIN SUPPLEMENTATION
     Route: 048
  2. LUPRON DEPOT [Suspect]
     Active Substance: LEUPROLIDE ACETATE
     Indication: UTERINE LEIOMYOMA
     Route: 050
     Dates: start: 20160419

REACTIONS (9)
  - Vaginal haemorrhage [Unknown]
  - Drug dose omission [Not Recovered/Not Resolved]
  - Infusion site extravasation [Recovered/Resolved]
  - Haemoglobin decreased [Unknown]
  - Joint swelling [Recovered/Resolved]
  - Haematocrit decreased [Unknown]
  - Anaemia [Unknown]
  - Infusion site swelling [Recovered/Resolved]
  - Infusion site pain [Recovered/Resolved]

NARRATIVE: CASE EVENT DATE: 20160421
